FAERS Safety Report 5635783-6 (Version None)
Quarter: 2008Q1

REPORT INFORMATION
  Report Type: 
  Country: None (occurrence: None)
  Receive Date: 20080221
  Receipt Date: 20080206
  Transmission Date: 20080703
  Serious: Yes (Hospitalization)
  Sender: FDA-Public Use
  Company Number: S08-FRA-00160-01

PATIENT
  Age: 32 Year
  Sex: Male

DRUGS (5)
  1. AOTAL (ACAMPROSATE) [Suspect]
     Dosage: 333 MG TID PO
     Route: 048
     Dates: end: 20070409
  2. ESPERAL (DISULFIRAM) [Suspect]
     Dates: end: 20070409
  3. NOCTRAM (ACEPROMAZINE/CLORAZEPATE DIPOTASSIUM) [Suspect]
     Dosage: 5 MG QD PO
     Route: 048
     Dates: end: 20070409
  4. OXAZEPAM [Suspect]
     Dosage: 25 MG QD PO
     Route: 048
     Dates: end: 20070409
  5. INEXIUM (ESOMEPRAZOLE) [Concomitant]

REACTIONS (5)
  - CELL DEATH [None]
  - CHOLESTASIS [None]
  - HEPATITIS [None]
  - HEPATITIS TOXIC [None]
  - HEPATOSPLENOMEGALY [None]
